FAERS Safety Report 23874641 (Version 1)
Quarter: 2024Q2

REPORT INFORMATION
  Report Type: Spontaneous
  Country: US (occurrence: None)
  Receive Date: 20240520
  Receipt Date: 20240520
  Transmission Date: 20240715
  Serious: No
  Sender: FDA-Public Use
  Company Number: None

PATIENT
  Age: 18 Year
  Sex: Male

DRUGS (1)
  1. COSENTYX [Suspect]
     Active Substance: SECUKINUMAB
     Indication: Psoriatic arthropathy
     Dosage: 150 EVERY 4 WEEKS SQ?
     Route: 058
     Dates: start: 20231214

REACTIONS (3)
  - Cardiomegaly [None]
  - Autoimmune disorder [None]
  - Loss of consciousness [None]

NARRATIVE: CASE EVENT DATE: 20240517
